FAERS Safety Report 18067550 (Version 2)
Quarter: 2020Q3

REPORT INFORMATION
  Report Type: Report from Study
  Country: US (occurrence: US)
  Receive Date: 20200724
  Receipt Date: 20200730
  Transmission Date: 20201103
  Serious: No
  Sender: FDA-Public Use
  Company Number: US-TAKEDA-2020TUS031881

PATIENT
  Sex: Male

DRUGS (1)
  1. VEDOLIZUMAB [Suspect]
     Active Substance: VEDOLIZUMAB
     Indication: COLITIS ULCERATIVE
     Dosage: 300 MILLIGRAM
     Route: 042
     Dates: start: 202004

REACTIONS (5)
  - Off label use [Unknown]
  - Weight decreased [Unknown]
  - Colitis ulcerative [Unknown]
  - Asthenia [Unknown]
  - Gastrointestinal infection [Unknown]
